FAERS Safety Report 9529785 (Version 1)
Quarter: 2013Q2

REPORT INFORMATION
  Report Type: Spontaneous
  Country: US (occurrence: None)
  Receive Date: 20130402
  Receipt Date: 20130402
  Transmission Date: 20140414
  Serious: Yes (Death)
  Sender: FDA-Public Use
  Company Number: RB-48868-2013

PATIENT
  Age: 24 Year
  Sex: Female

DRUGS (2)
  1. SUBOXONE [Suspect]
     Indication: INTENTIONAL DRUG MISUSE
     Dosage: SUBOXONE FILM; DOSING DETAILS UNKNOWN UNKNOWN
     Dates: end: 201208
  2. METHADONE [Suspect]
     Indication: DRUG ABUSE
     Dosage: DOSING DETAILS UNKNOWN UNKNOWN?
     Dates: end: 201208

REACTIONS (3)
  - Substance abuse [None]
  - Drug abuse [None]
  - Overdose [None]
